FAERS Safety Report 20146809 (Version 1)
Quarter: 2021Q4

REPORT INFORMATION
  Report Type: Spontaneous
  Country: None (occurrence: US)
  Receive Date: 20211203
  Receipt Date: 20211203
  Transmission Date: 20220303
  Serious: No
  Sender: FDA-Public Use
  Company Number: US-Jacobus Pharmaceutical Company, Inc.-2122666

PATIENT
  Age: 60 Year
  Sex: Female

DRUGS (17)
  1. RUZURGI [Suspect]
     Active Substance: AMIFAMPRIDINE
     Indication: Myasthenic syndrome
     Route: 048
     Dates: start: 20200104
  2. TRILIPIX [Concomitant]
     Active Substance: FENOFIBRIC ACID
  3. PRILOSEC OTC [Concomitant]
     Active Substance: OMEPRAZOLE MAGNESIUM
  4. AMITIZA [Concomitant]
     Active Substance: LUBIPROSTONE
  5. BACLOFEN [Concomitant]
     Active Substance: BACLOFEN
  6. LOSARTAN [Concomitant]
     Active Substance: LOSARTAN
  7. LEXAPRO [Interacting]
     Active Substance: ESCITALOPRAM OXALATE
  8. PROAIR HFA [Concomitant]
     Active Substance: ALBUTEROL SULFATE
  9. CALCIUM PLUS D3 [Concomitant]
  10. COENZYME Q10 [Concomitant]
     Active Substance: DIETARY SUPPLEMENT\UBIDECARENONE
  11. MYRBETRIQ [Concomitant]
     Active Substance: MIRABEGRON
  12. DOMPERIDONE [Concomitant]
     Active Substance: DOMPERIDONE
  13. DIAZEPAM [Concomitant]
     Active Substance: DIAZEPAM
  14. Prevegen [Concomitant]
  15. SOLU-MEDROL [Concomitant]
     Active Substance: METHYLPREDNISOLONE SODIUM SUCCINATE
  16. BENADRYL ALLERGY [Concomitant]
     Active Substance: DIPHENHYDRAMINE HYDROCHLORIDE
  17. BREO ELLIPTA [Concomitant]
     Active Substance: FLUTICASONE FUROATE\VILANTEROL TRIFENATATE

REACTIONS (2)
  - Hyperhidrosis [Not Recovered/Not Resolved]
  - Muscle spasms [Not Recovered/Not Resolved]
